FAERS Safety Report 24980947 (Version 1)
Quarter: 2025Q1

REPORT INFORMATION
  Report Type: Spontaneous
  Country: US (occurrence: None)
  Receive Date: 20250217
  Receipt Date: 20250217
  Transmission Date: 20250408
  Serious: Yes (Hospitalization)
  Sender: FDA-CTU
  Company Number: None

PATIENT
  Age: 60 Year
  Sex: Female

DRUGS (4)
  1. AMBRISENTAN [Suspect]
     Active Substance: AMBRISENTAN
  2. REMODULIN [Concomitant]
     Active Substance: TREPROSTINIL
     Dosage: FREQUENCY : DAILY;?
     Route: 048
     Dates: start: 202010
  3. TADALAFIL [Concomitant]
     Active Substance: TADALAFIL
  4. REMODULIN [Concomitant]
     Active Substance: TREPROSTINIL

REACTIONS (1)
  - Pericardial effusion [None]

NARRATIVE: CASE EVENT DATE: 20250130
